FAERS Safety Report 8531005-7 (Version None)
Quarter: 2012Q3

REPORT INFORMATION
  Report Type: 
  Country: None (occurrence: None)
  Receive Date: 20120711
  Receipt Date: 20120628
  Transmission Date: 20120928
  Serious: Yes (Hospitalization)
  Sender: FDA-Public Use
  Company Number: ENTC2012-0296

PATIENT
  Age: 90 Year
  Sex: Male

DRUGS (11)
  1. LEVOTHYROXINE SODIUM [Concomitant]
  2. TRILEPTAL [Suspect]
     Indication: CONVULSION
     Dosage: 600 MG (300 MG, 2 IN 1 D), ORAL
     Route: 048
  3. DIOVAN [Suspect]
     Dosage: 40/160 MG
  4. ATORVASTATIN [Concomitant]
  5. CLORANA [Concomitant]
  6. CLOPIDOGREL [Concomitant]
  7. SEROQUEL [Concomitant]
  8. STALEVO 50 [Suspect]
     Indication: PARKINSON'S DISEASE
     Dosage: 5 TABLETS (150/37.5/200 MG, A DAY, ORAL
     Route: 048
  9. NITROFURANTOIN [Concomitant]
  10. EXELON [Suspect]
     Dosage: TRANSDERMAL
     Route: 062
  11. MEMANTINE HYDROCHLORIDE [Concomitant]

REACTIONS (3)
  - DERMATITIS ALLERGIC [None]
  - URINARY TRACT INFECTION [None]
  - PROSTATITIS [None]
